FAERS Safety Report 16418836 (Version 1)
Quarter: 2019Q2

REPORT INFORMATION
  Report Type: Spontaneous
  Country: CA (occurrence: CA)
  Receive Date: 20190612
  Receipt Date: 20190612
  Transmission Date: 20190711
  Serious: Yes (Hospitalization)
  Sender: FDA-Public Use
  Company Number: CA-AUROBINDO-AUR-APL-2019-031650

PATIENT

DRUGS (1)
  1. LOSARTAN TABLETS [Suspect]
     Active Substance: LOSARTAN
     Indication: HYPERTENSION
     Dosage: 50 MILLIGRAM, TWO TIMES A DAY
     Route: 048

REACTIONS (6)
  - Rash [Unknown]
  - Dyspnoea [Unknown]
  - Hypertension [Unknown]
  - Product substitution issue [Unknown]
  - Hypersensitivity [Unknown]
  - Drug ineffective [Unknown]
